FAERS Safety Report 6700593-5 (Version None)
Quarter: 2010Q2

REPORT INFORMATION
  Report Type: 
  Country: None (occurrence: None)
  Receive Date: 20100426
  Receipt Date: 20100409
  Transmission Date: 20101027
  Serious: Yes (Other)
  Sender: FDA-Public Use
  Company Number: 2010-00413

PATIENT
  Age: 68 Year
  Sex: Female

DRUGS (3)
  1. PERINDOPRIL [Suspect]
     Indication: DRUG USE FOR UNKNOWN INDICATION
     Dosage: 8 MG
  2. EZETIMIBE MICRONISED (EZETROL) [Suspect]
     Indication: DRUG USE FOR UNKNOWN INDICATION
     Dosage: 10 MG
  3. CANDESARTAN CILEXETIL (AMIAS) [Suspect]
     Indication: DRUG USE FOR UNKNOWN INDICATION
     Dosage: 4 MG

REACTIONS (8)
  - AGEUSIA [None]
  - ANOSMIA [None]
  - BULBAR PALSY [None]
  - BURNING SENSATION [None]
  - DRY EYE [None]
  - EYE PRURITUS [None]
  - LIP SWELLING [None]
  - STOMATITIS [None]
